FAERS Safety Report 4363279-0 (Version None)
Quarter: 2004Q2

REPORT INFORMATION
  Report Type: 
  Country: None (occurrence: None)
  Receive Date: 20040518
  Receipt Date: 20040504
  Transmission Date: 20050107
  Serious: Yes (Hospitalization)
  Sender: FDA-Public Use
  Company Number: D01200401580

PATIENT
  Age: 50 Year
  Sex: Male
  Weight: 113.6 kg

DRUGS (1)
  1. CISPLATIN [Suspect]
     Indication: NEOPLASM MALIGNANT
     Dosage: 100 MG/M2 OTHER - INTRAVENOUS  NOS
     Route: 042
     Dates: start: 20040419, end: 20040419

REACTIONS (2)
  - DYSPHAGIA [None]
  - GLOSSODYNIA [None]
